FAERS Safety Report 25079492 (Version 1)
Quarter: 2025Q1

REPORT INFORMATION
  Report Type: Spontaneous
  Country: LV (occurrence: LV)
  Receive Date: 20250314
  Receipt Date: 20250314
  Transmission Date: 20250409
  Serious: Yes (Hospitalization, Other)
  Sender: PFIZER
  Company Number: LV-PFIZER INC-PV202500030817

PATIENT
  Age: 53 Year
  Sex: Female

DRUGS (3)
  1. LORLATINIB [Suspect]
     Active Substance: LORLATINIB
     Indication: Lung adenocarcinoma stage IV
     Dosage: 100 MG, 1X/DAY
     Dates: start: 20221102
  2. CARBOPLATIN/PEMETREXED [Concomitant]
     Indication: Lung adenocarcinoma stage IV
     Dates: start: 20241220
  3. CARBOPLATIN/DOXORUBICIN [Concomitant]
     Indication: Lung adenocarcinoma stage IV

REACTIONS (12)
  - Metastases to liver [Unknown]
  - Metastases to lung [Unknown]
  - Malignant neoplasm progression [Unknown]
  - Troponin increased [Unknown]
  - Tachycardia [Recovered/Resolved]
  - Blood cholesterol increased [Unknown]
  - High density lipoprotein increased [Unknown]
  - Non-high-density lipoprotein cholesterol increased [Unknown]
  - Low density lipoprotein increased [Unknown]
  - Myalgia [Unknown]
  - Arthralgia [Unknown]
  - Chest pain [Unknown]

NARRATIVE: CASE EVENT DATE: 20230714
